FAERS Safety Report 18548494 (Version 1)
Quarter: 2020Q4

REPORT INFORMATION
  Report Type: Report from Study
  Country: US (occurrence: US)
  Receive Date: 20201125
  Receipt Date: 20201125
  Transmission Date: 20210114
  Serious: Yes (Death, Life-Threatening, Other)
  Sender: FDA-Public Use
  Company Number: US-JNJFOC-20201135406

PATIENT

DRUGS (6)
  1. ACETAMINOPHEN. [Suspect]
     Active Substance: ACETAMINOPHEN
     Indication: PAIN
     Route: 065
  2. GABAPENTIN. [Suspect]
     Active Substance: GABAPENTIN
     Dosage: 3 TIMES DAILY ON DAY 3
     Route: 065
  3. GABAPENTIN. [Suspect]
     Active Substance: GABAPENTIN
     Dosage: 300 MG IN THE MORNING AND EVENING ON DAY 2,
     Route: 065
  4. GABAPENTIN. [Suspect]
     Active Substance: GABAPENTIN
     Dosage: ON DAY 1
     Route: 065
  5. DURAGESIC [Suspect]
     Active Substance: FENTANYL
     Indication: PAIN
     Dosage: INITIATED AT A DOSE OF 25 G/HOUR AND TITRATED UP TO 100 G/HOUR AS NEEDED
     Route: 062
  6. HYDROCODONE [Suspect]
     Active Substance: HYDROCODONE
     Indication: PAIN
     Dosage: 325 MG FOR HYDROCODONE PER 15 ML OF ELIXIR TAKEN UP TO 4 TIMES PER DAY
     Route: 065

REACTIONS (22)
  - Dehydration [Unknown]
  - Acute kidney injury [Unknown]
  - Neutrophil count decreased [Unknown]
  - Pyrexia [Unknown]
  - Death [Fatal]
  - Pneumonia [Unknown]
  - Vomiting [Unknown]
  - Nausea [Unknown]
  - Cardiac arrest [Fatal]
  - Mucosal inflammation [Unknown]
  - Lymphocyte count decreased [Unknown]
  - Odynophagia [Unknown]
  - Hyponatraemia [Unknown]
  - Febrile neutropenia [Unknown]
  - Decreased appetite [Unknown]
  - Diarrhoea [Unknown]
  - Embolism [Unknown]
  - Hypoxia [Unknown]
  - Pain [Unknown]
  - White blood cell count decreased [Unknown]
  - Dysphagia [Unknown]
  - Erythema [Unknown]
